FAERS Safety Report 8851953 (Version 3)
Quarter: 2013Q1

REPORT INFORMATION
  Report Type: Spontaneous
  Country: BR (occurrence: BR)
  Receive Date: 20121022
  Receipt Date: 20130220
  Transmission Date: 20140127
  Serious: Yes (Death, Hospitalization)
  Sender: FDA-Public Use
  Company Number: BR-ABBOTT-12P-020-0997104-00

PATIENT
  Age: 51 Year
  Sex: Male
  Weight: 88 kg

DRUGS (10)
  1. HUMIRA [Suspect]
     Indication: PSORIATIC ARTHROPATHY
     Route: 058
     Dates: start: 201208
  2. ENALAPRIL [Concomitant]
     Indication: HYPERTENSION
     Route: 048
     Dates: start: 200810
  3. AMIODARONE [Concomitant]
     Indication: CARDIAC DISORDER
     Dates: start: 201204
  4. COLCHICINE [Concomitant]
     Indication: GOUT
     Route: 048
     Dates: start: 2008
  5. PREDNISONE [Concomitant]
     Indication: PRODUCT USED FOR UNKNOWN INDICATION
     Route: 048
     Dates: start: 201204
  6. CARVEDILOL [Concomitant]
     Indication: PRODUCT USED FOR UNKNOWN INDICATION
     Route: 048
     Dates: start: 201207
  7. AAS [Concomitant]
     Indication: ANTICOAGULANT THERAPY
     Route: 048
     Dates: start: 201207
  8. CLOPIDOGREL [Concomitant]
     Indication: CARDIAC DISORDER
     Route: 048
     Dates: start: 201206, end: 201207
  9. UNSPECIFIED VITAMIN [Concomitant]
     Indication: ANAEMIA
     Dosage: PATIENT HAS TAKEN 3 DOSES
     Route: 050
  10. ALLOPURINOL [Concomitant]
     Indication: LACTOSE INTOLERANCE
     Route: 048
     Dates: start: 201204

REACTIONS (13)
  - Shock [Fatal]
  - Diarrhoea [Unknown]
  - Haematemesis [Unknown]
  - Sepsis [Fatal]
  - Pneumonia [Fatal]
  - Immunosuppression [Fatal]
  - Liver disorder [Fatal]
  - Renal failure chronic [Fatal]
  - Cardiomegaly [Unknown]
  - Chest pain [Unknown]
  - Pulmonary oedema [Unknown]
  - Hypotension [Unknown]
  - Blood glucose decreased [Unknown]
